FAERS Safety Report 4264303-6 (Version None)
Quarter: 2004Q1

REPORT INFORMATION
  Report Type: 
  Country: None (occurrence: None)
  Receive Date: 20040102
  Receipt Date: 20031216
  Transmission Date: 20041129
  Serious: Yes (Disabling, Other)
  Sender: FDA-Public Use
  Company Number: EM2003-0446

PATIENT

DRUGS (1)
  1. PROLEUKIN [Suspect]
     Dosage: 1.0 X 10^6 IU/M2, QD, SUBCUTAN.
     Route: 058

REACTIONS (3)
  - DIFFICULTY IN WALKING [None]
  - GUILLAIN-BARRE SYNDROME [None]
  - RADIAL NERVE PALSY [None]
